FAERS Safety Report 23150606 (Version 2)
Quarter: 2024Q1

REPORT INFORMATION
  Report Type: Report from Study
  Country: FR (occurrence: FR)
  Receive Date: 20231106
  Receipt Date: 20240108
  Transmission Date: 20240410
  Serious: Yes (Hospitalization)
  Sender: FDA-Public Use
  Company Number: FR-ABBVIE-5476992

PATIENT
  Age: 73 Year
  Sex: Male
  Weight: 83 kg

DRUGS (11)
  1. UPADACITINIB [Suspect]
     Active Substance: UPADACITINIB
     Indication: Rheumatoid arthritis
     Dosage: 15 MILLIGRAM
     Route: 048
     Dates: start: 20211130, end: 20230214
  2. UPADACITINIB [Suspect]
     Active Substance: UPADACITINIB
     Indication: Rheumatoid arthritis
     Dosage: 15 MILLIGRAM
     Route: 048
     Dates: start: 20231005, end: 20240104
  3. UPADACITINIB [Suspect]
     Active Substance: UPADACITINIB
     Indication: Rheumatoid arthritis
     Dosage: 15 MILLIGRAM
     Route: 048
     Dates: start: 20230315, end: 20230918
  4. UPADACITINIB [Suspect]
     Active Substance: UPADACITINIB
     Indication: Rheumatoid arthritis
     Route: 048
     Dates: start: 20240104
  5. BISOPROLOL [Concomitant]
     Active Substance: BISOPROLOL\BISOPROLOL FUMARATE
     Indication: Acute coronary syndrome
     Dosage: 2.5 MILLIGRAM
     Dates: start: 20200215
  6. METHOTREXATE [Concomitant]
     Active Substance: METHOTREXATE
     Indication: Rheumatoid arthritis
     Dates: start: 20171223
  7. FOLIC ACID [Concomitant]
     Active Substance: FOLIC ACID
     Indication: Rheumatoid arthritis
     Dates: start: 20171223
  8. NITROGLYCERIN [Concomitant]
     Active Substance: NITROGLYCERIN
     Indication: Acute coronary syndrome
     Dosage: TIME INTERVAL: AS NECESSARY
     Dates: start: 20200215, end: 2022
  9. ATORVASTATIN [Concomitant]
     Active Substance: ATORVASTATIN
     Indication: Acute coronary syndrome
     Dosage: 40 MILLIGRAM
     Dates: start: 20200215
  10. ASPIRIN\CLOPIDOGREL [Concomitant]
     Active Substance: ASPIRIN\CLOPIDOGREL
     Indication: Acute coronary syndrome
     Dosage: 75 MILLIGRAM
     Dates: start: 202003
  11. SARS-CoV-2 vaccine [Concomitant]
     Indication: COVID-19 prophylaxis
     Dosage: SEVERE ACUTE RESPIRATORY SYNDROME CORONAVIRUS 2 (SARS-COV-2) VACCINE
     Dates: start: 202201, end: 202201

REACTIONS (1)
  - Osteoarthritis [Recovered/Resolved]

NARRATIVE: CASE EVENT DATE: 20220501
